FAERS Safety Report 7934041-4 (Version None)
Quarter: 2011Q4

REPORT INFORMATION
  Report Type: 
  Country: None (occurrence: None)
  Receive Date: 20111122
  Receipt Date: 20111109
  Transmission Date: 20120403
  Serious: Yes (Hospitalization, Other)
  Sender: FDA-Public Use
  Company Number: JP-ROCHE-797860

PATIENT
  Sex: Female
  Weight: 47 kg

DRUGS (4)
  1. PROMAC [Concomitant]
     Dosage: INFUSION RATE DECREASED
     Route: 048
  2. AVASTIN [Suspect]
     Indication: COLON CANCER METASTATIC
     Dosage: DRUG WITHDRAWN
     Route: 041
     Dates: start: 20100816, end: 20110201
  3. CELECOXIB [Suspect]
     Indication: BACK PAIN
     Dosage: INFUSION RATE DECREASED
     Route: 048
  4. NIZATIDINE [Concomitant]
     Dosage: INFUSION RATE DECREASED
     Route: 048

REACTIONS (7)
  - PEPTIC ULCER PERFORATION [None]
  - INFECTIOUS PERITONITIS [None]
  - GASTROINTESTINAL PERFORATION [None]
  - PELVIC ABSCESS [None]
  - WHITE BLOOD CELL COUNT DECREASED [None]
  - BACK PAIN [None]
  - RED BLOOD CELL COUNT DECREASED [None]
